FAERS Safety Report 7350241-9 (Version None)
Quarter: 2011Q1

REPORT INFORMATION
  Report Type: 
  Country: None (occurrence: None)
  Receive Date: 20110222
  Receipt Date: 20101019
  Transmission Date: 20110831
  Serious: Yes (Hospitalization, Disabling)
  Sender: FDA-Public Use
  Company Number: WAES 1010USA02214

PATIENT
  Age: 81 Year
  Sex: Male
  Weight: 84.8226 kg

DRUGS (9)
  1. METOPROLOL [Concomitant]
  2. ULORIC [Suspect]
     Indication: GOUT
     Dosage: 80 MG/DAILY
     Dates: start: 20100630
  3. NITROSTAT [Concomitant]
  4. SPIRIVA [Concomitant]
  5. LISINOPRIL [Concomitant]
  6. COLCHICINE [Concomitant]
  7. ASPIRIN [Concomitant]
  8. ZOCOR [Suspect]
     Indication: PRODUCT USED FOR UNKNOWN INDICATION
     Dosage: 20 MG/DAILY/PO
     Route: 048
  9. BUMEX [Concomitant]

REACTIONS (4)
  - RHABDOMYOLYSIS [None]
  - RENAL FAILURE ACUTE [None]
  - INCORRECT DRUG ADMINISTRATION DURATION [None]
  - LIVER FUNCTION TEST ABNORMAL [None]
